FAERS Safety Report 20722614 (Version 2)
Quarter: 2022Q4

REPORT INFORMATION
  Report Type: Other
  Country: JP (occurrence: JP)
  Receive Date: 20220419
  Receipt Date: 20221018
  Transmission Date: 20230113
  Serious: Yes (Life-Threatening, Hospitalization)
  Sender: FDA-Public Use
  Company Number: JP-CHUGAI-2022014072

PATIENT
  Age: 66 Year
  Sex: Male

DRUGS (2)
  1. EMICIZUMAB [Suspect]
     Active Substance: EMICIZUMAB
     Indication: Haemophilia A with anti factor VIII
     Dosage: UNK
     Route: 058
     Dates: start: 20200803
  2. NOVOSEVEN [Concomitant]
     Active Substance: COAGULATION FACTOR VIIA RECOMBINANT HUMAN

REACTIONS (5)
  - Arterial haemorrhage [Recovering/Resolving]
  - Mediastinal haematoma [Recovering/Resolving]
  - Haemothorax [Recovering/Resolving]
  - Vascular pseudoaneurysm [Recovering/Resolving]
  - Skin cancer [Recovered/Resolved]

NARRATIVE: CASE EVENT DATE: 20220629
